FAERS Safety Report 8522018-X (Version None)
Quarter: 2012Q3

REPORT INFORMATION
  Report Type: 
  Country: None (occurrence: None)
  Receive Date: 20120719
  Receipt Date: 20120717
  Transmission Date: 20120928
  Serious: Yes (Other)
  Sender: FDA-Public Use
  Company Number: GB-PFIZER INC-2012171741

PATIENT
  Age: 18 Year
  Sex: Female

DRUGS (1)
  1. VARENICLINE TARTRATE [Suspect]
     Indication: SMOKING CESSATION THERAPY
     Dosage: UNK

REACTIONS (5)
  - HEADACHE [None]
  - TRANSIENT ISCHAEMIC ATTACK [None]
  - COORDINATION ABNORMAL [None]
  - VIITH NERVE PARALYSIS [None]
  - APHASIA [None]
